FAERS Safety Report 14380818 (Version 1)
Quarter: 2018Q1

REPORT INFORMATION
  Report Type: Spontaneous
  Country: CA (occurrence: CA)
  Receive Date: 20180112
  Receipt Date: 20180112
  Transmission Date: 20180509
  Serious: Yes (Other)
  Sender: FDA-Public Use
  Company Number: CA-PFIZER INC-2018003113

PATIENT
  Age: 55 Year
  Sex: Female

DRUGS (6)
  1. PLAQUENIL [Concomitant]
     Active Substance: HYDROXYCHLOROQUINE SULFATE
     Dosage: 200 MG, UNK
     Dates: start: 2005, end: 2005
  2. METHOTREXATE. [Concomitant]
     Active Substance: METHOTREXATE
     Indication: RHEUMATOID ARTHRITIS
     Dosage: 20 G, UNK
     Dates: start: 2007, end: 2010
  3. HUMIRA [Concomitant]
     Active Substance: ADALIMUMAB
     Dosage: 40 G, UNK
     Dates: start: 2008, end: 2008
  4. MEDROL [Suspect]
     Active Substance: METHYLPREDNISOLONE
     Dosage: 6 G, DAILY
     Dates: start: 2005
  5. ARAVA [Concomitant]
     Active Substance: LEFLUNOMIDE
     Dosage: 20 G, UNK
     Dates: start: 2006, end: 2006
  6. ENBREL [Concomitant]
     Active Substance: ETANERCEPT
     Indication: RHEUMATOID ARTHRITIS
     Dosage: 50 G, UNK
     Dates: start: 2010, end: 2017

REACTIONS (3)
  - Drug ineffective [Unknown]
  - Cellulitis [Unknown]
  - Wound infection [Unknown]

NARRATIVE: CASE EVENT DATE: 201711
